FAERS Safety Report 7548473-X (Version None)
Quarter: 2011Q2

REPORT INFORMATION
  Report Type: 
  Country: None (occurrence: None)
  Receive Date: 20110615
  Receipt Date: 20110602
  Transmission Date: 20111010
  Serious: Yes (Death)
  Sender: FDA-Public Use
  Company Number: US-SOLVAY-00211004328

PATIENT
  Age: 26068 Day
  Sex: Male

DRUGS (1)
  1. ANDROGEL [Suspect]
     Indication: BLOOD TESTOSTERONE DECREASED
     Dosage: DAILY DOSE:  UNKNOWN; ONE PACKET TO SKIN EVERY MORNING.
     Route: 062

REACTIONS (1)
  - DEATH [None]
